FAERS Safety Report 7705798-2 (Version None)
Quarter: 2011Q3

REPORT INFORMATION
  Report Type: 
  Country: None (occurrence: None)
  Receive Date: 20110824
  Receipt Date: 20110824
  Transmission Date: 20111222
  Serious: Yes (Life-Threatening)
  Sender: FDA-Public Use
  Company Number: None

PATIENT
  Age: 59 Year
  Sex: Female
  Weight: 89.811 kg

DRUGS (1)
  1. AZELASTINE HCL [Suspect]
     Indication: RHINITIS
     Dosage: 1 INHALATION
     Route: 045
     Dates: start: 20110819, end: 20110823

REACTIONS (2)
  - FEELING ABNORMAL [None]
  - BLOOD PRESSURE SYSTOLIC INCREASED [None]
